FAERS Safety Report 6442979-2 (Version None)
Quarter: 2009Q4

REPORT INFORMATION
  Report Type: 
  Country: None (occurrence: None)
  Receive Date: 20091117
  Receipt Date: 20091105
  Transmission Date: 20100525
  Serious: Yes (Hospitalization)
  Sender: FDA-Public Use
  Company Number: CA-ELI_LILLY_AND_COMPANY-CA200911001779

PATIENT
  Age: 84 Year
  Sex: Female

DRUGS (5)
  1. FORTEO [Suspect]
     Indication: OSTEOPOROSIS
     Dosage: 20 UG, DAILY (1/D)
     Route: 058
     Dates: start: 20081024
  2. PLAVIX [Concomitant]
  3. COVERSYL [Concomitant]
  4. VITAMIN B-12 [Concomitant]
     Dosage: UNK, MONTHLY (1/M)
  5. LUMIGAN [Concomitant]
     Dosage: 1 GTT, UNK

REACTIONS (4)
  - ABASIA [None]
  - DIZZINESS [None]
  - DYSSTASIA [None]
  - INVESTIGATION [None]
